FAERS Safety Report 16547766 (Version 1)
Quarter: 2019Q3

REPORT INFORMATION
  Report Type: Spontaneous
  Country: DK (occurrence: DK)
  Receive Date: 20190709
  Receipt Date: 20190709
  Transmission Date: 20191004
  Serious: Yes (Hospitalization)
  Sender: FDA-Public Use
  Company Number: DK-BAUSCH-BL-2019-019521

PATIENT
  Age: 40 Year
  Sex: Male
  Weight: 105 kg

DRUGS (4)
  1. BUFOMIX EASYHALER [Concomitant]
     Active Substance: BUDESONIDE\FORMOTEROL FUMARATE
     Indication: ASTHMA
     Dosage: STRENGTH: 9 PLUS 320 MICROGRAM
     Route: 055
     Dates: start: 20161221
  2. KYNTHEUM [Suspect]
     Active Substance: BRODALUMAB
     Indication: PSORIASIS
     Dosage: WEEKS 0, 1, 2
     Route: 058
     Dates: start: 20190502, end: 2019
  3. KYNTHEUM [Suspect]
     Active Substance: BRODALUMAB
     Route: 058
     Dates: start: 2019
  4. BUVENTOL EASYHALER [Concomitant]
     Active Substance: ALBUTEROL SULFATE
     Indication: ASTHMA
     Dosage: 1 DOSAGE FORM AS REQUIRED, MAXIMUM 5 TIMES DAILY
     Route: 055

REACTIONS (3)
  - Arthritis [Recovered/Resolved with Sequelae]
  - Pyrexia [Recovered/Resolved]
  - Arthritis [Recovered/Resolved]

NARRATIVE: CASE EVENT DATE: 201905
